FAERS Safety Report 13026160 (Version 1)
Quarter: 2016Q4

REPORT INFORMATION
  Report Type: Spontaneous
  Country: FR (occurrence: FR)
  Receive Date: 20161214
  Receipt Date: 20161214
  Transmission Date: 20170207
  Serious: Yes (Hospitalization)
  Sender: FDA-Public Use
  Company Number: FR-AUROBINDO-AUR-APL-2016-15173

PATIENT
  Age: 78 Year
  Sex: Female

DRUGS (6)
  1. EMEND [Suspect]
     Active Substance: APREPITANT
     Indication: PRODUCT USED FOR UNKNOWN INDICATION
     Dosage: 125 MG, UNK
     Route: 048
     Dates: start: 201601, end: 201607
  2. CETIRIZINE [Suspect]
     Active Substance: CETIRIZINE HYDROCHLORIDE
     Indication: PRODUCT USED FOR UNKNOWN INDICATION
     Dosage: 10 MG, UNIN 1 CYCLE OF CHEMOTHERAPY
     Route: 048
     Dates: start: 201601, end: 201607
  3. METHYLPREDNISOLONE MYLAN           /00049602/ [Suspect]
     Active Substance: METHYLPREDNISOLONE SODIUM SUCCINATE
     Indication: PRODUCT USED FOR UNKNOWN INDICATION
     Dosage: 120 MG, IN 1 CYCLE OF CHEMOTHERAPY
     Route: 042
     Dates: start: 20160106, end: 20160719
  4. PACLITAXEL HOSPIRA [Suspect]
     Active Substance: PACLITAXEL
     Indication: OVARIAN CANCER
     Dosage: 222 MG, IN 1 CYCLE OF CHEMOTHERAPY
     Route: 042
     Dates: start: 20160106, end: 20160719
  5. CARBOPLATIN HOSPIRA [Suspect]
     Active Substance: CARBOPLATIN
     Indication: OVARIAN CANCER
     Dosage: 590 MG, IN 1 CYCLE OF CHEMOTHERAPY
     Route: 042
     Dates: start: 20160106, end: 20160719
  6. SETOFILM [Suspect]
     Active Substance: ONDANSETRON
     Indication: PRODUCT USED FOR UNKNOWN INDICATION
     Dosage: 8 MG, UNK
     Route: 048
     Dates: start: 201601, end: 201607

REACTIONS (5)
  - Parkinsonism [Recovering/Resolving]
  - Myoclonus [Recovering/Resolving]
  - Gait disturbance [Recovering/Resolving]
  - Bradykinesia [Recovering/Resolving]
  - Tremor [Recovering/Resolving]

NARRATIVE: CASE EVENT DATE: 20160701
